FAERS Safety Report 16433294 (Version 2)
Quarter: 2019Q4

REPORT INFORMATION
  Report Type: Spontaneous
  Country: US (occurrence: US)
  Receive Date: 20190614
  Receipt Date: 20191022
  Transmission Date: 20200122
  Serious: Yes (Hospitalization, Other)
  Sender: FDA-Public Use
  Company Number: US-JNJFOC-20190610243

PATIENT
  Age: 70 Year
  Sex: Male

DRUGS (3)
  1. IMBRUVICA [Suspect]
     Active Substance: IBRUTINIB
     Indication: CHRONIC LYMPHOCYTIC LEUKAEMIA
     Route: 048
     Dates: start: 201401
  2. IMBRUVICA [Suspect]
     Active Substance: IBRUTINIB
     Route: 065
     Dates: end: 201905
  3. IMMUNOGLOBULIN HUMAN NORMAL [Concomitant]
     Active Substance: HUMAN IMMUNOGLOBULIN G

REACTIONS (8)
  - Walking disability [Recovering/Resolving]
  - Mental disability [Unknown]
  - Herpes zoster disseminated [Not Recovered/Not Resolved]
  - Infection [Unknown]
  - General physical health deterioration [Unknown]
  - Meningitis viral [Not Recovered/Not Resolved]
  - Immunodeficiency [Unknown]
  - Tracheostomy [Unknown]

NARRATIVE: CASE EVENT DATE: 2019
